FAERS Safety Report 14829872 (Version 1)
Quarter: 2018Q2

REPORT INFORMATION
  Report Type: Spontaneous
  Country: US (occurrence: US)
  Receive Date: 20180430
  Receipt Date: 20180430
  Transmission Date: 20180711
  Serious: Yes (Other)
  Sender: FDA-Public Use
  Company Number: US-GILEAD-2018-0334575

PATIENT
  Age: 61 Year
  Sex: Female

DRUGS (1)
  1. HARVONI [Suspect]
     Active Substance: LEDIPASVIR\SOFOSBUVIR
     Indication: HEPATITIS C
     Dosage: UNK
     Route: 065
     Dates: end: 2016

REACTIONS (14)
  - Agitation [Unknown]
  - Menopause [Unknown]
  - Nausea [Unknown]
  - Asthenia [Unknown]
  - Liver disorder [Unknown]
  - Nightmare [Unknown]
  - Fatigue [Unknown]
  - Hepatic cirrhosis [Not Recovered/Not Resolved]
  - Insomnia [Unknown]
  - Crying [Unknown]
  - Memory impairment [Unknown]
  - Tremor [Unknown]
  - Abdominal distension [Unknown]
  - Pruritus [Unknown]

NARRATIVE: CASE EVENT DATE: 201801
